FAERS Safety Report 12137601 (Version 2)
Quarter: 2016Q1

REPORT INFORMATION
  Report Type: Report from Study
  Country: US (occurrence: US)
  Receive Date: 20160302
  Receipt Date: 20160308
  Transmission Date: 20160526
  Serious: Yes (Death, Hospitalization)
  Sender: FDA-Public Use
  Company Number: US-ACTELION-A-US2016-130976

PATIENT
  Age: 46 Year
  Sex: Male

DRUGS (12)
  1. LETAIRIS [Concomitant]
     Active Substance: AMBRISENTAN
  2. FOSAMAX [Concomitant]
     Active Substance: ALENDRONATE SODIUM
  3. SIMVASTATIN. [Concomitant]
     Active Substance: SIMVASTATIN
  4. METOPROLOL. [Concomitant]
     Active Substance: METOPROLOL
  5. VENTAVIS [Suspect]
     Active Substance: ILOPROST
     Indication: PULMONARY ARTERIAL HYPERTENSION
     Dosage: 5 X/DAY
     Route: 055
     Dates: start: 20150808
  6. SILDENAFIL. [Concomitant]
     Active Substance: SILDENAFIL
     Indication: PULMONARY ARTERIAL HYPERTENSION
  7. PREDNISONE. [Concomitant]
     Active Substance: PREDNISONE
  8. OSCAL [Concomitant]
     Active Substance: CALCIUM CARBONATE
  9. VENTOLIN [Concomitant]
     Active Substance: ALBUTEROL SULFATE
  10. LASIX [Concomitant]
     Active Substance: FUROSEMIDE
  11. ALBUTEROL. [Concomitant]
     Active Substance: ALBUTEROL
  12. BACTRIM [Concomitant]
     Active Substance: SULFAMETHOXAZOLE\TRIMETHOPRIM

REACTIONS (2)
  - Death [Fatal]
  - Dyspnoea [Recovering/Resolving]

NARRATIVE: CASE EVENT DATE: 20160114
